APPROVED DRUG PRODUCT: ALPRAZOLAM
Active Ingredient: ALPRAZOLAM
Strength: 0.25MG
Dosage Form/Route: TABLET, ORALLY DISINTEGRATING;ORAL
Application: A078561 | Product #001 | TE Code: AB
Applicant: ACTAVIS ELIZABETH LLC AN INDIRECT WHOLLY OWNED SUB OF TEVA PHARMACEUTICALS USA INC
Approved: Mar 16, 2010 | RLD: No | RS: No | Type: RX